FAERS Safety Report 7630676-7 (Version None)
Quarter: 2011Q3

REPORT INFORMATION
  Report Type: 
  Country: None (occurrence: None)
  Receive Date: 20110722
  Receipt Date: 20110713
  Transmission Date: 20111222
  Serious: Yes (Hospitalization, Other)
  Sender: FDA-Public Use
  Company Number: US-ASTRAZENECA-2011SE42144

PATIENT
  Age: 49 Year
  Sex: Male

DRUGS (2)
  1. CRESTOR [Suspect]
     Route: 048
  2. C-PAP MACHINE [Concomitant]

REACTIONS (4)
  - CYST REMOVAL [None]
  - CONTINUOUS POSITIVE AIRWAY PRESSURE [None]
  - ANKLE FRACTURE [None]
  - CYST [None]
